FAERS Safety Report 8016525-6 (Version None)
Quarter: 2011Q4

REPORT INFORMATION
  Report Type: 
  Country: None (occurrence: None)
  Receive Date: 20111230
  Receipt Date: 20100301
  Transmission Date: 20120403
  Serious: Yes (Death)
  Sender: FDA-Public Use
  Company Number: PHHY2010AR11822

PATIENT
  Sex: Female

DRUGS (1)
  1. EXELON [Suspect]
     Indication: DEMENTIA ALZHEIMER'S TYPE
     Dosage: 10 CM, 1 PATCH DAILY, 9.5 MG, QD
     Route: 062
     Dates: start: 20091223, end: 20100126

REACTIONS (1)
  - CARDIAC ARREST [None]
